FAERS Safety Report 24781135 (Version 1)
Quarter: 2024Q4

REPORT INFORMATION
  Report Type: Spontaneous
  Country: US (occurrence: US)
  Receive Date: 20241227
  Receipt Date: 20241227
  Transmission Date: 20250115
  Serious: No
  Sender: ROCHE
  Company Number: US-ROCHE-10000161240

PATIENT
  Age: 77 Year
  Sex: Female
  Weight: 65.77 kg

DRUGS (7)
  1. ACTEMRA [Suspect]
     Active Substance: TOCILIZUMAB
     Indication: Rheumatoid arthritis
     Route: 058
  2. ACTEMRA [Suspect]
     Active Substance: TOCILIZUMAB
     Indication: Rheumatoid arthritis
     Dosage: ONGOING NO
     Route: 058
  3. ACTEMRA [Suspect]
     Active Substance: TOCILIZUMAB
     Dosage: ONGOING UNKNOWN
     Route: 058
     Dates: start: 2024
  4. GABAPENTIN [Concomitant]
     Active Substance: GABAPENTIN
     Indication: Muscle spasms
     Route: 048
     Dates: start: 2018
  5. DULOXETINE [Concomitant]
     Active Substance: DULOXETINE
     Indication: Arthritis
     Route: 048
  6. AMLODIPINE [Concomitant]
     Active Substance: AMLODIPINE BESYLATE
     Indication: Hypertension
     Route: 048
     Dates: start: 2015
  7. COVID-19 VACCINE [Concomitant]
     Indication: COVID-19
     Dosage: FIRST DOSE AND BOOSTERS - ALL PFIZER

REACTIONS (8)
  - Product dose omission issue [Unknown]
  - Wrong technique in product usage process [Unknown]
  - Feeling abnormal [Unknown]
  - Hypokinesia [Unknown]
  - Syncope [Unknown]
  - Product communication issue [Unknown]
  - Product complaint [Unknown]
  - Device defective [Unknown]

NARRATIVE: CASE EVENT DATE: 20241210
